FAERS Safety Report 5069606-3 (Version None)
Quarter: 2006Q3

REPORT INFORMATION
  Report Type: 
  Country: None (occurrence: None)
  Receive Date: 20060803
  Receipt Date: 20060725
  Transmission Date: 20061208
  Serious: Yes (Life-Threatening, Hospitalization, Disabling)
  Sender: FDA-Public Use
  Company Number: GB-BRISTOL-MYERS SQUIBB COMPANY-13463831

PATIENT
  Age: 59 Year
  Sex: Female

DRUGS (4)
  1. ENDOXAN [Suspect]
     Indication: PEMPHIGOID
     Route: 048
     Dates: start: 20060301, end: 20060601
  2. FUROSEMIDE [Concomitant]
     Indication: HYPERTENSION
     Route: 048
  3. GLICLAZIDE [Concomitant]
     Indication: DIABETES MELLITUS
     Route: 048
  4. PREDNISOLONE [Concomitant]
     Indication: PEMPHIGOID
     Dates: start: 20060301

REACTIONS (3)
  - CYTOMEGALOVIRUS INFECTION [None]
  - LYMPHOPENIA [None]
  - PNEUMONIA [None]
